FAERS Safety Report 7562699-0 (Version None)
Quarter: 2011Q2

REPORT INFORMATION
  Report Type: 
  Country: None (occurrence: None)
  Receive Date: 20110622
  Receipt Date: 20110616
  Transmission Date: 20111010
  Serious: Yes (Hospitalization, Other)
  Sender: FDA-Public Use
  Company Number: GB-PFIZER INC-2011133220

PATIENT
  Age: 53 Year
  Sex: Female

DRUGS (26)
  1. SANDO K [Concomitant]
  2. TINZAPARIN SODIUM [Concomitant]
  3. DOCUSATE SODIUM [Concomitant]
  4. MAGNESIUM ASPARTATE [Concomitant]
  5. MIDAZOLAM [Concomitant]
  6. FLUCONAZOLE [Concomitant]
  7. METOCLOPRAMIDE [Concomitant]
  8. SALBUTAMOL [Concomitant]
  9. CIPROFLOXACIN [Concomitant]
  10. HALOPERIDOL [Concomitant]
  11. ALFENTANIL [Concomitant]
  12. MEROPENEM TRIHYDRATE [Concomitant]
  13. MORPHINE [Concomitant]
  14. NYSTATIN [Concomitant]
  15. VANCOMYCIN [Concomitant]
  16. CLARITHROMYCIN [Concomitant]
  17. CYCLIZINE [Concomitant]
  18. FUROSEMIDE [Concomitant]
  19. PARACETAMOL [Concomitant]
  20. SENNA [Concomitant]
  21. ERYTHROMYCIN [Concomitant]
  22. NOREPINEPHRINE BITARTRATE [Concomitant]
  23. PHOSPHATE-SANDOZ [Concomitant]
  24. VORICONAZOLE [Suspect]
     Indication: LUNG ABSCESS
     Dosage: 240 MG, 1X/DAY
     Route: 042
     Dates: start: 20110520, end: 20110531
  25. PROPOFOL [Concomitant]
  26. TEMAZEPAM [Concomitant]

REACTIONS (2)
  - HEPATOMEGALY [None]
  - LIVER FUNCTION TEST ABNORMAL [None]
